FAERS Safety Report 7746647-6 (Version None)
Quarter: 2011Q3

REPORT INFORMATION
  Report Type: 
  Country: None (occurrence: None)
  Receive Date: 20110913
  Receipt Date: 20110908
  Transmission Date: 20111222
  Serious: Yes (Death, Other)
  Sender: FDA-Public Use
  Company Number: JP-BAYER-2011-058967

PATIENT
  Age: 69 Year
  Sex: Female

DRUGS (3)
  1. NEXAVAR [Suspect]
     Indication: HEPATIC NEOPLASM MALIGNANT
     Dosage: 400 MG, BID
     Route: 048
     Dates: start: 20110624, end: 20110714
  2. NEXAVAR [Suspect]
     Dosage: 200 MG, TID
     Route: 048
     Dates: end: 20110812
  3. NEXAVAR [Suspect]
     Dosage: 400 MG, DAILY
     Route: 048
     Dates: start: 20110701

REACTIONS (7)
  - PNEUMONIA [None]
  - ASPARTATE AMINOTRANSFERASE INCREASED [None]
  - PYREXIA [None]
  - ANAL ABSCESS [None]
  - HYPERHIDROSIS [None]
  - HEPATIC NEOPLASM MALIGNANT [None]
  - DECREASED APPETITE [None]
